FAERS Safety Report 7546361-6 (Version None)
Quarter: 2011Q2

REPORT INFORMATION
  Report Type: 
  Country: None (occurrence: None)
  Receive Date: 20110614
  Receipt Date: 20100211
  Transmission Date: 20111010
  Serious: No
  Sender: FDA-Public Use
  Company Number: US-BAYER-201014516NA

PATIENT
  Age: 20 Year
  Sex: Female

DRUGS (1)
  1. MIRENA [Suspect]
     Indication: PRODUCT USED FOR UNKNOWN INDICATION
     Dosage: 20 ?G, UNK
     Route: 015
     Dates: start: 20091015, end: 20091109

REACTIONS (3)
  - MENORRHAGIA [None]
  - ABDOMINAL PAIN LOWER [None]
  - BACK PAIN [None]
